FAERS Safety Report 17872915 (Version 1)
Quarter: 2020Q2

REPORT INFORMATION
  Report Type: Spontaneous
  Country: FR (occurrence: FR)
  Receive Date: 20200608
  Receipt Date: 20200608
  Transmission Date: 20200714
  Serious: Yes (Hospitalization)
  Sender: FDA-Public Use
  Company Number: FR-CELGENEUS-FRA-20200601426

PATIENT
  Age: 79 Year
  Sex: Female
  Weight: 93 kg

DRUGS (1)
  1. VIDAZA [Suspect]
     Active Substance: AZACITIDINE
     Indication: MYELODYSPLASTIC SYNDROME
     Dosage: DOSE NOT PROVIDED
     Route: 058
     Dates: start: 20200402, end: 20200408

REACTIONS (6)
  - Rash macular [Recovered/Resolved]
  - Vomiting [Recovered/Resolved]
  - Gastric disorder [Recovered/Resolved]
  - Nausea [Recovered/Resolved]
  - Inflammation [Recovered/Resolved]
  - Acute kidney injury [Recovering/Resolving]

NARRATIVE: CASE EVENT DATE: 202004
